FAERS Safety Report 11208928 (Version 1)
Quarter: 2015Q2

REPORT INFORMATION
  Report Type: Report from Study
  Country: TH (occurrence: TH)
  Receive Date: 20150622
  Receipt Date: 20150622
  Transmission Date: 20150821
  Serious: Yes (Other)
  Sender: FDA-Public Use
  Company Number: TH-BAXTER-2015BAX033989

PATIENT
  Sex: Female

DRUGS (4)
  1. CISATRACURIUM [Suspect]
     Active Substance: CISATRACURIUM
     Indication: ENDOTRACHEAL INTUBATION
     Dosage: 0.1-0.15 MG/KG
     Route: 042
  2. SEVOFLURANE (INHALATION ANESTHETIC) [Suspect]
     Active Substance: SEVOFLURANE
     Indication: INDUCTION OF ANAESTHESIA
     Route: 055
  3. ATRACURIUM [Suspect]
     Active Substance: ATRACURIUM
     Indication: ENDOTRACHEAL INTUBATION
     Dosage: 0.5-0.6 MG/KG
     Route: 042
  4. AERRANE [Suspect]
     Active Substance: ISOFLURANE
     Indication: MAINTENANCE OF ANAESTHESIA
     Route: 055

REACTIONS (2)
  - Apnoea [Unknown]
  - Post procedural complication [Unknown]
